FAERS Safety Report 12804335 (Version 1)
Quarter: 2016Q4

REPORT INFORMATION
  Report Type: Spontaneous
  Country: GB (occurrence: GB)
  Receive Date: 20161003
  Receipt Date: 20161003
  Transmission Date: 20170207
  Serious: Yes (Death, Other)
  Sender: FDA-Public Use
  Company Number: GB-PFM-2016-00026

PATIENT

DRUGS (1)
  1. NAVELBINE [Suspect]
     Active Substance: VINORELBINE TARTRATE
     Indication: LUNG NEOPLASM MALIGNANT
     Dosage: UNK
     Route: 048
     Dates: end: 20160901

REACTIONS (9)
  - Organ failure [Fatal]
  - Neutropenic sepsis [Fatal]
  - Diarrhoea [Unknown]
  - Influenza like illness [Unknown]
  - Oral mucosal blistering [Unknown]
  - Decreased appetite [Unknown]
  - Eating disorder [None]
  - Pain [Unknown]
  - Tinnitus [Unknown]

NARRATIVE: CASE EVENT DATE: 20160825
